FAERS Safety Report 5934176-1 (Version None)
Quarter: 2008Q4

REPORT INFORMATION
  Report Type: 
  Country: None (occurrence: None)
  Receive Date: 20081029
  Receipt Date: 20081020
  Transmission Date: 20090506
  Serious: Yes (Hospitalization)
  Sender: FDA-Public Use
  Company Number: B0542475A

PATIENT
  Age: 27 Year
  Sex: Female

DRUGS (2)
  1. COMBIVIR [Suspect]
     Indication: HIV INFECTION
     Dosage: 1TAB TWICE PER DAY
     Route: 048
     Dates: start: 20040901
  2. VIREAD [Suspect]
     Indication: HIV INFECTION
     Route: 048
     Dates: start: 20040901

REACTIONS (17)
  - ASTHENIA [None]
  - BLOOD CREATINE PHOSPHOKINASE INCREASED [None]
  - BLOOD TRIGLYCERIDES INCREASED [None]
  - CARDIOMEGALY [None]
  - CARDIOMYOPATHY [None]
  - CHEST PAIN [None]
  - DIZZINESS [None]
  - ELECTROCARDIOGRAM REPOLARISATION ABNORMALITY [None]
  - HEADACHE [None]
  - HIGH DENSITY LIPOPROTEIN DECREASED [None]
  - ILL-DEFINED DISORDER [None]
  - LEFT VENTRICULAR HYPERTROPHY [None]
  - MALAISE [None]
  - MEAN CELL VOLUME INCREASED [None]
  - MYALGIA [None]
  - T-LYMPHOCYTE COUNT DECREASED [None]
  - VENTRICULAR HYPOKINESIA [None]
